FAERS Safety Report 8056834-8 (Version None)
Quarter: 2012Q1

REPORT INFORMATION
  Report Type: 
  Country: None (occurrence: None)
  Receive Date: 20120119
  Receipt Date: 20110614
  Transmission Date: 20120608
  Serious: No
  Sender: FDA-Public Use
  Company Number: US-SANOFI-AVENTIS-2011SA041101

PATIENT
  Age: 74 Year
  Sex: Female
  Weight: 86.2 kg

DRUGS (19)
  1. DETROL [Suspect]
     Indication: BLADDER DISORDER
     Route: 048
  2. SIMVASTATIN [Concomitant]
  3. BIOTIN [Concomitant]
  4. CALCIUM [Concomitant]
     Dosage: TWO TABLETS
  5. TRAMADOL HCL [Concomitant]
     Indication: BACK DISORDER
  6. FENOFIBRATE [Concomitant]
  7. ISOSORBIDE MONONITRATE [Concomitant]
  8. MULTI-VITAMINS [Concomitant]
  9. LASIX [Suspect]
     Route: 048
  10. ACETYLSALICYLIC ACID SRT [Concomitant]
  11. NEURONTIN [Concomitant]
  12. ATENOLOL [Concomitant]
  13. VITAMIN D [Concomitant]
     Dosage: DOSE:1000 UNIT(S)
  14. OMACOR [Concomitant]
     Indication: CONSTIPATION
  15. LYSINE [Concomitant]
  16. METHOCARBAMOL [Concomitant]
     Indication: BACK DISORDER
  17. SYNTHROID [Concomitant]
  18. POTASSIUM CHLORIDE [Concomitant]
  19. VITAMIN B-12 [Concomitant]

REACTIONS (3)
  - BLADDER DISORDER [None]
  - WEIGHT INCREASED [None]
  - URINARY INCONTINENCE [None]
